FAERS Safety Report 21725150 (Version 1)
Quarter: 2022Q4

REPORT INFORMATION
  Report Type: Spontaneous
  Country: US (occurrence: US)
  Receive Date: 20221214
  Receipt Date: 20221214
  Transmission Date: 20230113
  Serious: No
  Sender: FDA-Public Use
  Company Number: US-LEO Pharma-347598

PATIENT
  Sex: Female

DRUGS (3)
  1. DUPIXENT [Concomitant]
     Active Substance: DUPILUMAB
     Indication: Product used for unknown indication
     Dosage: UNKNOWN
  2. ADBRY [Suspect]
     Active Substance: TRALOKINUMAB-LDRM
     Indication: Dermatitis atopic
     Dosage: DOSAGE: 300 MG EVERY TWO WEEKS SUBCUTANEOUSLY
     Route: 058
     Dates: start: 202210
  3. ADBRY [Suspect]
     Active Substance: TRALOKINUMAB-LDRM
     Indication: Seborrhoeic dermatitis
     Dosage: DOSAGE: 300 MG EVERY TWO WEEKS SUBCUTANEOUSLY
     Route: 058
     Dates: start: 202210

REACTIONS (2)
  - Abdominal pain upper [Recovered/Resolved]
  - Abdominal discomfort [Recovered/Resolved]
